FAERS Safety Report 6030090-4 (Version None)
Quarter: 2009Q1

REPORT INFORMATION
  Report Type: 
  Country: None (occurrence: None)
  Receive Date: 20090106
  Receipt Date: 20090106
  Transmission Date: 20090719
  Serious: Yes (Hospitalization)
  Sender: FDA-Public Use
  Company Number: None

PATIENT
  Sex: Male
  Weight: 69 kg

DRUGS (9)
  1. VELCADE [Suspect]
     Indication: MULTIPLE MYELOMA
     Dosage: 1.3 MG/M2 IV D 1, 4, 8, 11
     Route: 042
     Dates: start: 20081219
  2. VELCADE [Suspect]
     Indication: MULTIPLE MYELOMA
     Dosage: 1.3 MG/M2 IV D 1, 4, 8, 11
     Route: 042
     Dates: start: 20081222
  3. VELCADE [Suspect]
     Indication: MULTIPLE MYELOMA
     Dosage: 1.3 MG/M2 IV D 1, 4, 8, 11
     Route: 042
     Dates: start: 20081226
  4. VELCADE [Suspect]
     Indication: MULTIPLE MYELOMA
     Dosage: 1.3 MG/M2 IV D 1, 4, 8, 11
     Route: 042
     Dates: start: 20081229
  5. DEXAMETHASONE [Concomitant]
  6. DOXIRUBICIN [Concomitant]
  7. ALCAR [Concomitant]
  8. ACYCLOVIR [Concomitant]
  9. LORAZEPAM [Concomitant]

REACTIONS (7)
  - ASTHENIA [None]
  - COUGH [None]
  - DIZZINESS [None]
  - DYSPNOEA [None]
  - HAEMATOCHEZIA [None]
  - NAUSEA [None]
  - PYREXIA [None]
